FAERS Safety Report 4785816-4 (Version None)
Quarter: 2005Q3

REPORT INFORMATION
  Report Type: 
  Country: None (occurrence: None)
  Receive Date: 20050929
  Receipt Date: 20050915
  Transmission Date: 20060218
  Serious: Yes (Hospitalization)
  Sender: FDA-Public Use
  Company Number: 190004L05JPN

PATIENT
  Age: 45 Year
  Sex: Female

DRUGS (8)
  1. PERGONAL [Suspect]
     Indication: OVULATION INDUCTION
     Dosage: SEE IMAGE
     Route: 030
     Dates: start: 20021101
  2. PERGONAL [Suspect]
     Indication: OVULATION INDUCTION
     Dosage: SEE IMAGE
     Route: 030
     Dates: start: 20021101
  3. PERGONAL [Suspect]
     Indication: OVULATION INDUCTION
     Dosage: SEE IMAGE
     Route: 030
     Dates: start: 20030201
  4. PERGONAL [Suspect]
     Indication: OVULATION INDUCTION
     Dosage: SEE IMAGE
     Route: 030
     Dates: start: 20030201
  5. PERGONAL [Suspect]
     Indication: OVULATION INDUCTION
     Dosage: SEE IMAGE
     Route: 030
     Dates: start: 20030801
  6. PERGONAL [Suspect]
     Indication: OVULATION INDUCTION
     Dosage: SEE IMAGE
     Route: 030
     Dates: start: 20031001
  7. CLOMIFENE CITRATE (CLOMIFENE CITRATE) [Concomitant]
  8. SUPRECUR (BUSERELIN ACETATE) [Concomitant]

REACTIONS (3)
  - AMENORRHOEA [None]
  - BLOOD FOLLICLE STIMULATING HORMONE DECREASED [None]
  - OVARIAN GRANULOSA-THECA CELL TUMOUR [None]
